FAERS Safety Report 4679153-6 (Version None)
Quarter: 2005Q2

REPORT INFORMATION
  Report Type: 
  Country: None (occurrence: None)
  Receive Date: 20050527
  Receipt Date: 20050401
  Transmission Date: 20051028
  Serious: No
  Sender: FDA-Public Use
  Company Number: S05-USA-01690-01

PATIENT
  Age: 68 Year
  Sex: Male

DRUGS (6)
  1. CAMPRAL [Suspect]
     Indication: ALCOHOLISM
     Dosage: 666 MG TID PO
     Route: 048
     Dates: start: 20050314
  2. COUMADIN [Suspect]
     Indication: HEART VALVE REPLACEMENT
     Dosage: 10 MG QOD PO
     Route: 048
     Dates: start: 19940101, end: 20050331
  3. COUMADIN [Suspect]
     Indication: HEART VALVE REPLACEMENT
     Dosage: 15 MG TIW PO
     Route: 048
     Dates: start: 19940101, end: 20050331
  4. LIPITOR [Concomitant]
  5. ATENOLOL [Concomitant]
  6. ACTONEL [Concomitant]

REACTIONS (2)
  - DRUG INTERACTION [None]
  - INTERNATIONAL NORMALISED RATIO INCREASED [None]
